FAERS Safety Report 5425574-3 (Version None)
Quarter: 2007Q3

REPORT INFORMATION
  Report Type: 
  Country: None (occurrence: None)
  Receive Date: 20070824
  Receipt Date: 20070814
  Transmission Date: 20080115
  Serious: No
  Sender: FDA-Public Use
  Company Number: CO-PFIZER INC-2007065919

PATIENT
  Sex: Male

DRUGS (2)
  1. ZITHROMAX [Suspect]
     Route: 048
     Dates: start: 20070702, end: 20070702
  2. ANTIDEPRESSANTS [Concomitant]

REACTIONS (2)
  - URTICARIA [None]
  - VOMITING [None]
